FAERS Safety Report 6276103-6 (Version None)
Quarter: 2009Q3

REPORT INFORMATION
  Report Type: 
  Country: None (occurrence: None)
  Receive Date: 20090717
  Receipt Date: 20090717
  Transmission Date: 20100115
  Serious: Yes (Other)
  Sender: FDA-Public Use
  Company Number: None

PATIENT
  Sex: Female
  Weight: 10.8863 kg

DRUGS (1)
  1. SYNTHROID [Suspect]
     Dosage: 125 MCG
     Dates: start: 20050401, end: 20060701

REACTIONS (1)
  - PRODUCT SUBSTITUTION ISSUE [None]
